FAERS Safety Report 12795932 (Version 2)
Quarter: 2016Q4

REPORT INFORMATION
  Report Type: Report from Study
  Country: CA (occurrence: CA)
  Receive Date: 20160929
  Receipt Date: 20161006
  Transmission Date: 20170207
  Serious: Yes (Other)
  Sender: FDA-Public Use
  Company Number: PHHY2015CA166721

PATIENT
  Age: 74 Year
  Sex: Male

DRUGS (2)
  1. TAMSULOSIN SANDOZ [Suspect]
     Active Substance: TAMSULOSIN
     Indication: PROSTATIC DISORDER
     Dosage: 0.4 MG, QD
     Route: 048
  2. COSENTYX [Suspect]
     Active Substance: SECUKINUMAB
     Indication: PSORIASIS
     Dosage: 300 MG, QMO
     Route: 058
     Dates: start: 20151023

REACTIONS (7)
  - Pneumonia [Unknown]
  - Incorrect dose administered [Unknown]
  - Bronchitis [Unknown]
  - Malaise [Unknown]
  - Nasopharyngitis [Unknown]
  - Somnolence [Unknown]
  - Cough [Not Recovered/Not Resolved]

NARRATIVE: CASE EVENT DATE: 20151023
